FAERS Safety Report 20813451 (Version 2)
Quarter: 2022Q2

REPORT INFORMATION
  Report Type: Report from Study
  Country: BR (occurrence: BR)
  Receive Date: 20220511
  Receipt Date: 20220627
  Transmission Date: 20220720
  Serious: Yes (Life-Threatening, Hospitalization)
  Sender: FDA-Public Use
  Company Number: BR-BIOGEN-2022BI01105198

PATIENT
  Age: 0 Year
  Sex: Female
  Weight: 7.5 kg

DRUGS (2)
  1. SPINRAZA [Suspect]
     Active Substance: NUSINERSEN
     Indication: Spinal muscular atrophy
     Route: 037
     Dates: start: 20211026
  2. VITAMIN D [Concomitant]
     Active Substance: VITAMIN D NOS
     Indication: Product used for unknown indication
     Dosage: 3 TO 5 DROPS A DAY

REACTIONS (15)
  - Aspiration [Not Recovered/Not Resolved]
  - Dyspnoea [Not Recovered/Not Resolved]
  - Inappropriate schedule of product administration [Recovered/Resolved]
  - Dysphagia [Not Recovered/Not Resolved]
  - Stoma site reaction [Not Recovered/Not Resolved]
  - Pneumothorax [Recovered/Resolved]
  - Postoperative wound infection [Recovered/Resolved]
  - Catheter site swelling [Recovered/Resolved]
  - Thrombosis [Recovered/Resolved]
  - Eye swelling [Recovered/Resolved]
  - Pyrexia [Recovered/Resolved]
  - Poor sucking reflex [Unknown]
  - Feeding disorder [Recovered/Resolved]
  - Milk allergy [Recovered/Resolved]
  - Device issue [Unknown]

NARRATIVE: CASE EVENT DATE: 20211101
